FAERS Safety Report 21875122 (Version 1)
Quarter: 2023Q1

REPORT INFORMATION
  Report Type: Report from Study
  Country: US (occurrence: US)
  Receive Date: 20230117
  Receipt Date: 20230117
  Transmission Date: 20230418
  Serious: Yes (Other)
  Sender: FDA-Public Use
  Company Number: US-ABBVIE-4272488

PATIENT
  Sex: Male

DRUGS (2)
  1. VENCLEXTA [Suspect]
     Active Substance: VENETOCLAX
     Indication: Product used for unknown indication
     Route: 048
     Dates: start: 20230102
  2. ELIQUIS [Concomitant]
     Active Substance: APIXABAN
     Indication: Anticoagulant therapy

REACTIONS (8)
  - Platelet transfusion [Unknown]
  - Asthenia [Unknown]
  - Dyspnoea exertional [Unknown]
  - Wheelchair user [Unknown]
  - Upper-airway cough syndrome [Unknown]
  - Cough [Unknown]
  - Red blood cell transfusion [Unknown]
  - Pyrexia [Not Recovered/Not Resolved]
